FAERS Safety Report 18594705 (Version 1)
Quarter: 2020Q4

REPORT INFORMATION
  Report Type: Spontaneous
  Country: US (occurrence: US)
  Receive Date: 20201208
  Receipt Date: 20201208
  Transmission Date: 20210114
  Serious: Yes (Other)
  Sender: FDA-Public Use
  Company Number: None

PATIENT
  Age: 59 Year
  Sex: Female
  Weight: 51.3 kg

DRUGS (26)
  1. SUMATRIPTIN [Concomitant]
  2. FLONASE [Concomitant]
     Active Substance: FLUTICASONE PROPIONATE
  3. PEPCID AC [Concomitant]
     Active Substance: FAMOTIDINE
  4. TRAZODONE [Concomitant]
     Active Substance: TRAZODONE HYDROCHLORIDE
  5. PREDNISONE. [Concomitant]
     Active Substance: PREDNISONE
  6. LEVALBUTEROL. [Concomitant]
     Active Substance: LEVALBUTEROL
  7. PANTOPRAZOLE [Concomitant]
     Active Substance: PANTOPRAZOLE
  8. CUVITRU [Suspect]
     Active Substance: HUMAN IMMUNOGLOBULIN G
     Indication: IMMUNODEFICIENCY
     Dosage: ?          QUANTITY:1 INFUSED;OTHER FREQUENCY:EVERY 3-4 DAYS;?
     Route: 058
     Dates: start: 20200408, end: 20201206
  9. CANE [Concomitant]
  10. MONTELUKAST [Concomitant]
     Active Substance: MONTELUKAST SODIUM
  11. SHOWER CHAIR [Concomitant]
  12. PHILLIPS COLOR HEALTH DAILY [Concomitant]
  13. TUMS [Concomitant]
     Active Substance: CALCIUM CARBONATE
  14. DICYCCLOMINE [Concomitant]
  15. EPIPEN [Concomitant]
     Active Substance: EPINEPHRINE
  16. ATORVASTATIN [Concomitant]
     Active Substance: ATORVASTATIN
  17. PROMETHAZINE [Concomitant]
     Active Substance: PROMETHAZINE HYDROCHLORIDE
  18. BENADRYL [Concomitant]
     Active Substance: DIPHENHYDRAMINE HYDROCHLORIDE
  19. DEXAMETH PHO [Concomitant]
  20. PEPTO-BISMOL [Concomitant]
     Active Substance: BISMUTH SUBSALICYLATE
  21. CELECOXIB. [Concomitant]
     Active Substance: CELECOXIB
  22. NEBULIZER [Concomitant]
     Active Substance: DEVICE
  23. DULERA [Concomitant]
     Active Substance: FORMOTEROL FUMARATE DIHYDRATE\MOMETASONE FUROATE
  24. SPRIVEA [Concomitant]
  25. THE BREATHER [Concomitant]
  26. CUVITRU [Suspect]
     Active Substance: HUMAN IMMUNOGLOBULIN G
     Indication: IMMUNODEFICIENCY
     Dosage: ?          QUANTITY:4 INFUSION PLUS 1 G;OTHER FREQUENCY:EVERY 3-4 DAYS;?
     Route: 058
     Dates: start: 20201108, end: 20201206

REACTIONS (12)
  - Hypersensitivity [None]
  - Nausea [None]
  - Confusional state [None]
  - Blister [None]
  - Burning sensation [None]
  - Infusion related reaction [None]
  - Skin reaction [None]
  - Urticaria [None]
  - Rash [None]
  - Pain [None]
  - Headache [None]
  - Swelling [None]

NARRATIVE: CASE EVENT DATE: 20201206
